FAERS Safety Report 8556608-5 (Version None)
Quarter: 2012Q3

REPORT INFORMATION
  Report Type: 
  Country: None (occurrence: None)
  Receive Date: 20120801
  Receipt Date: 20120723
  Transmission Date: 20120928
  Serious: Yes (Other)
  Sender: FDA-Public Use
  Company Number: US-INCYTE CORPORATION-2012IN001039

PATIENT
  Sex: Male
  Weight: 91.7 kg

DRUGS (1)
  1. JAKAFI [Suspect]
     Indication: MYELOFIBROSIS
     Dosage: 25 MG, BID
     Route: 048
     Dates: start: 20120314

REACTIONS (8)
  - LIMB INJURY [None]
  - CONTUSION [None]
  - DRUG INEFFECTIVE [None]
  - LIGAMENT SPRAIN [None]
  - MYALGIA [None]
  - HAEMORRHAGE [None]
  - FALL [None]
  - EXCORIATION [None]
